FAERS Safety Report 7529698-6 (Version None)
Quarter: 2011Q2

REPORT INFORMATION
  Report Type: 
  Country: None (occurrence: None)
  Receive Date: 20110607
  Receipt Date: 20101124
  Transmission Date: 20111010
  Serious: Yes (Other)
  Sender: FDA-Public Use
  Company Number: B0685989A

PATIENT
  Sex: Female
  Weight: 72 kg

DRUGS (13)
  1. ONDANSETRON [Concomitant]
     Dates: start: 20100825
  2. LIDOCAINE HYDROCHLORIDE [Concomitant]
     Dates: start: 20101018
  3. LACTULOSE [Concomitant]
     Dosage: 15ML TWICE PER DAY
     Dates: start: 20100719
  4. SERTRALINE HYDROCHLORIDE [Concomitant]
     Dosage: 50MG PER DAY
     Dates: start: 20100901
  5. LORMETAZEPAM [Concomitant]
     Indication: PANIC ATTACK
     Dosage: .5MG AS REQUIRED
  6. PREDNISOLONE [Concomitant]
  7. ONDANSETRON [Concomitant]
  8. INFLUENZA VACCINE (SPLIT VIRION, INACTIVATED) [Concomitant]
     Route: 058
  9. ZOFRAN [Suspect]
     Route: 065
     Dates: start: 20100716
  10. CYCLIZINE [Concomitant]
     Dosage: 50MG THREE TIMES PER DAY
     Dates: start: 20100702
  11. PROMETHAZINE HYDROCHLORIDE [Concomitant]
     Dates: start: 20100709
  12. FERROUS SULFATE TAB [Concomitant]
     Dosage: 200MG TWICE PER DAY
     Dates: start: 20101201
  13. PROCHLORPERAZINE TAB [Concomitant]
     Dates: start: 20100719

REACTIONS (3)
  - DRUG EXPOSURE DURING PREGNANCY [None]
  - DEPRESSION [None]
  - LIVE BIRTH [None]
